FAERS Safety Report 5599970-8 (Version None)
Quarter: 2008Q1

REPORT INFORMATION
  Report Type: 
  Country: None (occurrence: None)
  Receive Date: 20080123
  Receipt Date: 20080114
  Transmission Date: 20080703
  Serious: Yes (Hospitalization)
  Sender: FDA-Public Use
  Company Number: IT-ABBOTT-07P-083-0422040-01

PATIENT
  Sex: Female
  Weight: 46 kg

DRUGS (15)
  1. HUMIRA [Suspect]
     Indication: RHEUMATOID ARTHRITIS
     Route: 058
     Dates: start: 20041220, end: 20070401
  2. HUMIRA [Suspect]
     Route: 058
     Dates: start: 20071101
  3. LANSOPRAZOLE [Concomitant]
     Indication: PROPHYLAXIS AGAINST GASTROINTESTINAL ULCER
     Dates: start: 20070630
  4. CALCIFEDIOL [Concomitant]
     Indication: OSTEOPOROSIS
     Dates: start: 20070115
  5. RISEDRONATE SODIUM [Concomitant]
     Indication: OSTEOPOROSIS
     Dates: start: 20050916
  6. BROMAZEPAM [Concomitant]
     Indication: ANXIETY
     Dates: start: 20050914
  7. AURANOFIN [Concomitant]
     Indication: RHEUMATOID ARTHRITIS
     Dates: start: 19900101, end: 20000701
  8. PREDNISONE [Concomitant]
     Indication: RHEUMATOID ARTHRITIS
     Dates: start: 20000701
  9. METHOTREXATE [Concomitant]
     Indication: RHEUMATOID ARTHRITIS
     Dates: start: 20000701
  10. AMLODIPINE [Concomitant]
     Indication: HYPERTENSION
     Dates: start: 20031001
  11. GABAPENTIN [Concomitant]
     Indication: CARPAL TUNNEL SYNDROME
     Dates: start: 20021201
  12. PYRIDOXINE HYDROCHLORIDE [Concomitant]
     Indication: ANTIBIOTIC PROPHYLAXIS
     Dates: start: 20031108, end: 20031203
  13. PYRIDOXINE HYDROCHLORIDE [Concomitant]
     Indication: PROPHYLAXIS
  14. NICO2-10 [Concomitant]
     Indication: ANTIBIOTIC PROPHYLAXIS
     Dates: start: 20031106, end: 20031205
  15. NICO2-10 [Concomitant]
     Indication: PROPHYLAXIS

REACTIONS (1)
  - DIARRHOEA [None]
